FAERS Safety Report 4357940-1 (Version None)
Quarter: 2004Q2

REPORT INFORMATION
  Report Type: 
  Country: None (occurrence: None)
  Receive Date: 20040510
  Receipt Date: 20040422
  Transmission Date: 20050107
  Serious: Yes (Hospitalization, Other)
  Sender: FDA-Public Use
  Company Number: 167528

PATIENT
  Age: 51 Year
  Sex: Female
  Weight: 90.7194 kg

DRUGS (9)
  1. AVONEX [Suspect]
     Indication: MULTIPLE SCLEROSIS
     Dosage: 30 MCG QW IM
     Dates: start: 19991224
  2. PRILOSEC [Concomitant]
  3. LASIX [Concomitant]
  4. K-DUR 10 [Concomitant]
  5. GLUCOTROL XL [Concomitant]
  6. ZESTRIL [Concomitant]
  7. ZOLOFT [Concomitant]
  8. DETROL - SLOW RELEASE [Concomitant]
  9. PREVACID [Concomitant]

REACTIONS (4)
  - ANAEMIA [None]
  - COLON CANCER [None]
  - FULL BLOOD COUNT ABNORMAL [None]
  - POST PROCEDURAL HAEMORRHAGE [None]
